FAERS Safety Report 8261189-X (Version None)
Quarter: 2012Q2

REPORT INFORMATION
  Report Type: 
  Country: None (occurrence: None)
  Receive Date: 20120405
  Receipt Date: 20120330
  Transmission Date: 20120825
  Serious: No
  Sender: FDA-Public Use
  Company Number: US-BAYER-2012-031685

PATIENT
  Sex: Female

DRUGS (1)
  1. MIRENA [Suspect]
     Indication: CONTRACEPTION
     Dosage: 20 MCG/24HR, CONT
     Route: 015
     Dates: start: 20070601

REACTIONS (5)
  - PROCEDURAL PAIN [None]
  - AMENORRHOEA [None]
  - METRORRHAGIA [None]
  - MOOD SWINGS [None]
  - MENSTRUAL DISORDER [None]
